FAERS Safety Report 5524498-0 (Version None)
Quarter: 2007Q4

REPORT INFORMATION
  Report Type: 
  Country: None (occurrence: None)
  Receive Date: 20071122
  Receipt Date: 20071114
  Transmission Date: 20080405
  Serious: Yes (Other)
  Sender: FDA-Public Use
  Company Number: PHHY2007AR00511

PATIENT
  Age: 45 Year
  Sex: Male

DRUGS (1)
  1. DIOVAN TRIPLE [Suspect]
     Indication: HYPERTENSION
     Dosage: UNK, QD
     Dates: start: 20071001

REACTIONS (1)
  - CATHETER PLACEMENT [None]
